FAERS Safety Report 23968644 (Version 3)
Quarter: 2024Q2

REPORT INFORMATION
  Report Type: Report from Study
  Country: GB (occurrence: GB)
  Receive Date: 20240612
  Receipt Date: 20240626
  Transmission Date: 20240715
  Serious: Yes (Other)
  Sender: FDA-Public Use
  Company Number: GB-SANDOZ-SDZ2024GB027154

PATIENT
  Sex: Female

DRUGS (1)
  1. HYRIMOZ [Suspect]
     Active Substance: ADALIMUMAB-ADAZ
     Indication: Rheumatoid arthritis
     Dosage: 40 MG, Q3W(0.4ML)
     Route: 058

REACTIONS (8)
  - Rheumatoid arthritis [Unknown]
  - Exposure to communicable disease [Unknown]
  - Product dose omission issue [Unknown]
  - Incorrect product administration duration [Unknown]
  - Gastroenteritis viral [Unknown]
  - Injection site pain [Unknown]
  - Injection site haemorrhage [Unknown]
  - Drug ineffective [Unknown]
